FAERS Safety Report 25060014 (Version 1)
Quarter: 2025Q1

REPORT INFORMATION
  Report Type: Spontaneous
  Country: US (occurrence: None)
  Receive Date: 20250310
  Receipt Date: 20250310
  Transmission Date: 20250409
  Serious: No
  Sender: FDA-CTU
  Company Number: None

PATIENT
  Age: 64 Year
  Sex: Female
  Weight: 72 kg

DRUGS (5)
  1. FLUTICASONE PROPIONATE NASAL [Suspect]
     Active Substance: FLUTICASONE PROPIONATE
     Indication: Myringitis
     Dosage: FREQUENCY : TWICE A DAY;?
     Route: 055
     Dates: start: 20250217, end: 20250224
  2. FLUTICASONE PROPIONATE NASAL [Suspect]
     Active Substance: FLUTICASONE PROPIONATE
     Indication: Sinus congestion
  3. CENTRUM SENIOR [Concomitant]
  4. LYSINE [Concomitant]
     Active Substance: LYSINE
  5. ZINC [Concomitant]
     Active Substance: ZINC

REACTIONS (2)
  - Rash pruritic [None]
  - Rash erythematous [None]

NARRATIVE: CASE EVENT DATE: 20250224
